FAERS Safety Report 11680454 (Version 2)
Quarter: 2015Q4

REPORT INFORMATION
  Report Type: Spontaneous
  Country: US (occurrence: US)
  Receive Date: 20151027
  Receipt Date: 20151104
  Transmission Date: 20160304
  Serious: No
  Sender: FDA-Public Use
  Company Number: US-ELI_LILLY_AND_COMPANY-US201009000052

PATIENT
  Sex: Female

DRUGS (6)
  1. FORTEO [Suspect]
     Active Substance: TERIPARATIDE
     Dosage: 20 UG, QD
     Route: 065
  2. FORTEO [Suspect]
     Active Substance: TERIPARATIDE
     Dosage: 20 UG, QD
  3. FORTEO [Suspect]
     Active Substance: TERIPARATIDE
     Indication: OSTEOPOROSIS
     Dosage: 20 UG, QD
     Dates: start: 2010
  4. FORTEO [Suspect]
     Active Substance: TERIPARATIDE
     Dosage: 20 UG, QD
  5. CALCIUM [Concomitant]
     Active Substance: CALCIUM
     Dosage: 2 D/F, DAILY (1/D)
  6. CALCIUM [Concomitant]
     Active Substance: CALCIUM
     Dosage: 4 D/F, DAILY (1/D)

REACTIONS (13)
  - Depressed mood [Not Recovered/Not Resolved]
  - Constipation [Not Recovered/Not Resolved]
  - Swelling [Recovering/Resolving]
  - Musculoskeletal discomfort [Unknown]
  - Arthralgia [Unknown]
  - Muscular weakness [Unknown]
  - Limb discomfort [Unknown]
  - Pain [Recovering/Resolving]
  - Muscle spasms [Unknown]
  - Ear infection [Unknown]
  - Malaise [Recovering/Resolving]
  - Asthenia [Recovering/Resolving]
  - Arthropathy [Unknown]
